FAERS Safety Report 21715211 (Version 1)
Quarter: 2022Q4

REPORT INFORMATION
  Report Type: Report from Study
  Country: CA (occurrence: CA)
  Receive Date: 20221212
  Receipt Date: 20221212
  Transmission Date: 20230112
  Serious: Yes (Other)
  Sender: FDA-Public Use
  Company Number: CA-002147023-NVSC2022CA286764

PATIENT
  Age: 68 Year
  Sex: Female

DRUGS (3)
  1. TOBRAMYCIN [Suspect]
     Active Substance: TOBRAMYCIN
     Indication: Product used for unknown indication
     Dosage: 40 MG
     Route: 065
  2. MONTELUKAST [Concomitant]
     Active Substance: MONTELUKAST SODIUM
     Indication: Product used for unknown indication
     Dosage: 10 MG
     Route: 048
  3. CALTRATE SELECT [Concomitant]
     Indication: Product used for unknown indication
     Dosage: 600 MG
     Route: 048

REACTIONS (7)
  - Pneumonia [Unknown]
  - Hypertension [Unknown]
  - Dyspnoea [Unknown]
  - Cough [Unknown]
  - Rales [Unknown]
  - Central obesity [Unknown]
  - Asthma [Unknown]
